FAERS Safety Report 21524465 (Version 1)
Quarter: 2022Q4

REPORT INFORMATION
  Report Type: Spontaneous
  Country: US (occurrence: US)
  Receive Date: 20221029
  Receipt Date: 20221029
  Transmission Date: 20230113
  Serious: No
  Sender: FDA-Public Use
  Company Number: US-SA-SAC20221023000047

PATIENT
  Sex: Male
  Weight: 81.633 kg

DRUGS (8)
  1. CERDELGA [Suspect]
     Active Substance: ELIGLUSTAT
     Indication: Gaucher^s disease
     Dosage: 84 MG, BID
     Dates: start: 20190613
  2. AZATHIOPRINE [Concomitant]
     Active Substance: AZATHIOPRINE
     Dosage: UNK
  3. RITUXAN [Concomitant]
     Active Substance: RITUXIMAB
     Dosage: UNK
  4. GAMMAGARD [Concomitant]
     Active Substance: HUMAN IMMUNOGLOBULIN G
     Dosage: UNK
  5. SOLIRIS [Concomitant]
     Active Substance: ECULIZUMAB
     Dosage: UNK
  6. KETAMINE HYDROCHLORIDE [Concomitant]
     Active Substance: KETAMINE HYDROCHLORIDE
     Dosage: UNK
  7. DOXYCYCLINE HYCLATE [Concomitant]
     Active Substance: DOXYCYCLINE HYCLATE
     Dosage: UNK
  8. ZOLOFT [Concomitant]
     Active Substance: SERTRALINE HYDROCHLORIDE
     Dosage: UNK

REACTIONS (1)
  - Sinusitis [Unknown]
